FAERS Safety Report 7463923-5 (Version None)
Quarter: 2011Q2

REPORT INFORMATION
  Report Type: 
  Country: None (occurrence: None)
  Receive Date: 20110506
  Receipt Date: 20110426
  Transmission Date: 20111010
  Serious: Yes (Death, Hospitalization)
  Sender: FDA-Public Use
  Company Number: SK-CELGENEUS-260-50794-11043188

PATIENT
  Age: 68 Year
  Sex: Male

DRUGS (4)
  1. VIDAZA [Suspect]
     Route: 065
     Dates: end: 20110419
  2. ERYTHROPOETIN [Concomitant]
     Route: 065
  3. BETA BLOCKING AGENTS [Concomitant]
     Indication: HYPERTENSION
     Route: 065
  4. EXJADE [Concomitant]
     Route: 065

REACTIONS (1)
  - ACUTE MYOCARDIAL INFARCTION [None]
